FAERS Safety Report 9891610 (Version 1)
Quarter: 2014Q1

REPORT INFORMATION
  Report Type: Spontaneous
  Country: US (occurrence: US)
  Receive Date: 20140212
  Receipt Date: 20140212
  Transmission Date: 20141002
  Serious: Yes (Hospitalization)
  Sender: FDA-Public Use
  Company Number: US-ACTELION-A-US2014-94558

PATIENT
  Age: 73 Year
  Sex: Male

DRUGS (11)
  1. OPSUMIT [Suspect]
     Indication: PULMONARY HYPERTENSION
     Dosage: 10 MG, QD
     Route: 048
  2. FUROSEMIDE [Concomitant]
     Dosage: 80 MG, UNK
  3. TADALAFIL [Concomitant]
     Dosage: 20 MG, UNK
  4. AMLODIPINE [Concomitant]
     Dosage: 2.5 MG, UNK
  5. ASPIRIN [Concomitant]
     Dosage: 81 MG, UNK
  6. CALCITROL [Concomitant]
     Dosage: 0.25 MCG, UNK
  7. DIGOXIN [Concomitant]
     Dosage: 0.125 MG, UNK
  8. MULTIVITAMIN [Concomitant]
  9. SALMETEROL [Concomitant]
     Dosage: 50 MG/DOSE DISKUS
  10. TIOTROPIUM [Concomitant]
     Dosage: 18 MCG, UNK
  11. TRIAMCINOLONE [Concomitant]
     Dosage: 0.1 %, UNK

REACTIONS (7)
  - Right ventricular failure [Unknown]
  - Pulmonary arterial hypertension [Unknown]
  - Torsade de pointes [Unknown]
  - Bundle branch block right [Unknown]
  - Electrocardiogram QT prolonged [Unknown]
  - Dermatitis psoriasiform [Unknown]
  - Condition aggravated [Unknown]
